FAERS Safety Report 6793881-8 (Version None)
Quarter: 2010Q2

REPORT INFORMATION
  Report Type: 
  Country: None (occurrence: None)
  Receive Date: 20100624
  Receipt Date: 20100222
  Transmission Date: 20101027
  Serious: Yes (Other)
  Sender: FDA-Public Use
  Company Number: US-MYLANLABS-2010S1000140

PATIENT
  Age: 51 Year
  Sex: Male

DRUGS (8)
  1. CLOZAPINE [Suspect]
     Dates: start: 20091101, end: 20100114
  2. CLOZAPINE [Suspect]
     Dates: start: 20100115, end: 20100201
  3. POTASSIUM [Concomitant]
  4. LISINOPRIL [Concomitant]
  5. PREVACID [Concomitant]
  6. DEPAKOTE [Concomitant]
  7. HYDROCODONE [Concomitant]
  8. HALOPERIDOL [Concomitant]

REACTIONS (1)
  - GRANULOCYTOPENIA [None]
